FAERS Safety Report 7680890-X (Version None)
Quarter: 2011Q3

REPORT INFORMATION
  Report Type: 
  Country: None (occurrence: None)
  Receive Date: 20110812
  Receipt Date: 20110808
  Transmission Date: 20111222
  Serious: Yes (Hospitalization, Other)
  Sender: FDA-Public Use
  Company Number: US-PFIZER INC-2011138387

PATIENT
  Sex: Male
  Weight: 83.9 kg

DRUGS (12)
  1. METHAMPHETAMINE [Suspect]
  2. VIAGRA [Concomitant]
     Indication: ERECTILE DYSFUNCTION
     Dosage: UNK
  3. XANAX [Concomitant]
     Indication: ANXIETY
     Dosage: 1 MG, 3X/DAY DURATION OF TREATMENT YEARS
  4. VALIUM [Concomitant]
     Indication: INSOMNIA
     Dosage: 10 MG, HS DURATION OF TREATMENT 1 YEAR
  5. MARIJUANA [Suspect]
  6. WELLBUTRIN [Concomitant]
     Indication: BIPOLAR I DISORDER
     Dosage: 200 MG, 1X/DAY TREATMENT DURATION 1 YEAR
  7. DILANTIN-125 [Suspect]
     Indication: CONVULSION
     Dosage: 100 MG, 2X/DAY DURATION OF TREATMENT YEARS
     Route: 048
  8. DILANTIN-125 [Suspect]
     Dosage: 300 MG, 1X/DAY
  9. DILANTIN-125 [Suspect]
     Dosage: 600 MG, 1X/DAY
  10. DILANTIN-125 [Suspect]
     Dosage: 800 MG, 1X/DAY
  11. EXFORGE [Concomitant]
     Indication: HYPERTENSION
     Dosage: 10/160 MG DURATION OF TREATMENT 2 YEARS
  12. TRILEPTAL [Concomitant]
     Indication: BIPOLAR I DISORDER
     Dosage: 600 MG, 2X/DAY DURATION OF TREATMENT 1 YEAR

REACTIONS (8)
  - TOXICITY TO VARIOUS AGENTS [None]
  - ANTICONVULSANT DRUG LEVEL INCREASED [None]
  - LOSS OF CONSCIOUSNESS [None]
  - WEIGHT DECREASED [None]
  - CHEST PAIN [None]
  - DRUG INTERACTION [None]
  - CONVULSION [None]
  - VISION BLURRED [None]
